FAERS Safety Report 13986789 (Version 1)
Quarter: 2017Q3

REPORT INFORMATION
  Report Type: Spontaneous
  Country: FR (occurrence: FR)
  Receive Date: 20170919
  Receipt Date: 20170919
  Transmission Date: 20171128
  Serious: Yes (Hospitalization)
  Sender: FDA-Public Use
  Company Number: FR-PFIZER INC-2017398046

PATIENT
  Age: 62 Year
  Sex: Female

DRUGS (12)
  1. FLUOROURACILE PFIZER [Suspect]
     Active Substance: FLUOROURACIL
     Dosage: 4TH CYCLE
     Route: 042
     Dates: start: 20170725
  2. IRINOTECAN HOSPIRA [Suspect]
     Active Substance: IRINOTECAN
     Dosage: 4TH CYCLE
     Route: 042
     Dates: start: 20170725
  3. AVASTIN [Suspect]
     Active Substance: BEVACIZUMAB
     Dosage: 3RD CYCLE
     Route: 042
     Dates: start: 20170704
  4. IRINOTECAN HOSPIRA [Suspect]
     Active Substance: IRINOTECAN
     Dosage: 2ND CYCLE
     Route: 042
     Dates: start: 20170620
  5. IRINOTECAN HOSPIRA [Suspect]
     Active Substance: IRINOTECAN
     Indication: RECTAL CANCER METASTATIC
     Dosage: 1ST CYCLE
     Route: 042
     Dates: start: 20170606
  6. FLUOROURACILE PFIZER [Suspect]
     Active Substance: FLUOROURACIL
     Dosage: 2ND CYCLE
     Route: 042
     Dates: start: 20170620
  7. FLUOROURACILE PFIZER [Suspect]
     Active Substance: FLUOROURACIL
     Indication: RECTAL CANCER METASTATIC
     Dosage: 1ST CYCLE
     Route: 042
     Dates: start: 20170606
  8. FLUOROURACILE PFIZER [Suspect]
     Active Substance: FLUOROURACIL
     Dosage: 3RD CYCLE
     Route: 042
     Dates: start: 20170704
  9. AVASTIN [Suspect]
     Active Substance: BEVACIZUMAB
     Indication: RECTAL CANCER METASTATIC
     Dosage: 1ST CYCLE
     Route: 042
     Dates: start: 20170606
  10. AVASTIN [Suspect]
     Active Substance: BEVACIZUMAB
     Dosage: 2ND CYCLE
     Route: 042
     Dates: start: 20170620
  11. IRINOTECAN HOSPIRA [Suspect]
     Active Substance: IRINOTECAN
     Dosage: 3RD CYCLE
     Route: 042
     Dates: start: 20170704
  12. AVASTIN [Suspect]
     Active Substance: BEVACIZUMAB
     Dosage: 4TH CYCLE
     Route: 042
     Dates: start: 20170725, end: 20170725

REACTIONS (1)
  - Pulmonary embolism [Recovered/Resolved]

NARRATIVE: CASE EVENT DATE: 20170727
